FAERS Safety Report 17310462 (Version 1)
Quarter: 2020Q1

REPORT INFORMATION
  Report Type: Spontaneous
  Country: TW (occurrence: TW)
  Receive Date: 20200123
  Receipt Date: 20200123
  Transmission Date: 20200409
  Serious: Yes (Hospitalization)
  Sender: FDA-Public Use
  Company Number: TW-SA-2019SA123443

PATIENT
  Age: 14 Year
  Sex: Male

DRUGS (1)
  1. MYOZYME [Suspect]
     Active Substance: ALGLUCOSIDASE ALFA
     Dosage: 25 MG/KG, QW
     Route: 041
     Dates: start: 20180801

REACTIONS (2)
  - Influenza [Unknown]
  - Off label use [Unknown]

NARRATIVE: CASE EVENT DATE: 20180801
